FAERS Safety Report 13645197 (Version 1)
Quarter: 2017Q2

REPORT INFORMATION
  Report Type: Spontaneous
  Country: US (occurrence: US)
  Receive Date: 20170612
  Receipt Date: 20170612
  Transmission Date: 20170830
  Serious: No
  Sender: FDA-Public Use
  Company Number: US-ROCHE-1313005

PATIENT
  Sex: Male

DRUGS (8)
  1. PRAVASTATIN. [Concomitant]
     Active Substance: PRAVASTATIN
  2. PROTONIX [Concomitant]
     Active Substance: PANTOPRAZOLE SODIUM
  3. XELODA [Suspect]
     Active Substance: CAPECITABINE
     Indication: PRODUCT USED FOR UNKNOWN INDICATION
     Route: 048
     Dates: start: 20131001
  4. PRADAXA [Concomitant]
     Active Substance: DABIGATRAN ETEXILATE MESYLATE
  5. LOSARTAN. [Concomitant]
     Active Substance: LOSARTAN
  6. TRAMADOL. [Concomitant]
     Active Substance: TRAMADOL
  7. DIGOXIN. [Concomitant]
     Active Substance: DIGOXIN
  8. BISOPROLOL [Concomitant]
     Active Substance: BISOPROLOL

REACTIONS (4)
  - Hypoaesthesia [Unknown]
  - Nausea [Unknown]
  - Tremor [Unknown]
  - Viral upper respiratory tract infection [Unknown]
